FAERS Safety Report 9394370 (Version 1)
Quarter: 2013Q3

REPORT INFORMATION
  Report Type: Spontaneous
  Country: US (occurrence: US)
  Receive Date: 20130711
  Receipt Date: 20130711
  Transmission Date: 20140515
  Serious: No
  Sender: FDA-Public Use
  Company Number: US-009507513-1307USA004795

PATIENT
  Sex: Female

DRUGS (2)
  1. CLARINEX-D-12 [Suspect]
     Indication: HYPERSENSITIVITY
     Dosage: UNK, BID
     Route: 048
     Dates: start: 201305
  2. FIORINAL (ACETAMINOPHEN (+) ASPIRIN (+) CAFFEINE) [Concomitant]

REACTIONS (4)
  - Feeling abnormal [Not Recovered/Not Resolved]
  - Drug ineffective [Unknown]
  - Incorrect dose administered [Unknown]
  - Product quality issue [Unknown]
